FAERS Safety Report 15821290 (Version 3)
Quarter: 2019Q1

REPORT INFORMATION
  Report Type: Report from Study
  Country: FR (occurrence: FR)
  Receive Date: 20190114
  Receipt Date: 20190121
  Transmission Date: 20190417
  Serious: Yes (Hospitalization)
  Sender: FDA-Public Use
  Company Number: FR-PFIZER INC-2019015753

PATIENT
  Age: 76 Year
  Sex: Female
  Weight: 93 kg

DRUGS (17)
  1. AVELUMAB [Suspect]
     Active Substance: AVELUMAB
     Dosage: 920 MG, CYCLIC (ONCE EVERY TWO WEEKS
     Route: 042
  2. OXALIPLATIN. [Suspect]
     Active Substance: OXALIPLATIN
     Indication: ADENOCARCINOMA GASTRIC
     Dosage: 165 MG, UNK
     Route: 042
     Dates: start: 20170511
  3. OXALIPLATIN. [Suspect]
     Active Substance: OXALIPLATIN
     Dosage: 165 MG, UNK
     Route: 042
     Dates: end: 20170803
  4. AVELUMAB [Suspect]
     Active Substance: AVELUMAB
     Dosage: 960 MG, CYCLIC (ONCE EVERY TWO WEEKS)
     Route: 042
  5. AVELUMAB [Suspect]
     Active Substance: AVELUMAB
     Dosage: 920 MG, CYCLIC (ONCE EVERY TWO WEEKS
     Route: 042
  6. AVELUMAB [Suspect]
     Active Substance: AVELUMAB
     Dosage: 960 MG, CYCLIC (ONCE EVERY TWO WEEKS)
     Route: 042
  7. AVELUMAB [Suspect]
     Active Substance: AVELUMAB
     Dosage: 920 MG, CYCLIC (ONCE EVERY TWO WEEKS
     Route: 042
  8. OXALIPLATIN. [Suspect]
     Active Substance: OXALIPLATIN
     Dosage: 165 MG, UNK
     Route: 042
  9. FLUOROURACIL. [Suspect]
     Active Substance: FLUOROURACIL
     Indication: ADENOCARCINOMA GASTRIC
     Dosage: 5100 MG, UNK
     Route: 042
     Dates: start: 20170511
  10. FLUOROURACIL. [Suspect]
     Active Substance: FLUOROURACIL
     Dosage: 5100 MG, UNK
     Route: 042
  11. AVELUMAB [Suspect]
     Active Substance: AVELUMAB
     Dosage: 960 MG, CYCLIC (ONCE EVERY TWO WEEKS)
     Route: 042
  12. AVELUMAB [Suspect]
     Active Substance: AVELUMAB
     Dosage: 920 MG, CYCLIC (ONCE EVERY TWO WEEKS
     Route: 042
  13. AVELUMAB [Suspect]
     Active Substance: AVELUMAB
     Dosage: 960 MG, CYCLIC (ONCE EVERY TWO WEEKS
     Route: 042
  14. AVELUMAB [Suspect]
     Active Substance: AVELUMAB
     Dosage: 920 MG, CYCLIC (ONCE EVERY TWO WEEKS
     Route: 042
     Dates: end: 20181031
  15. AVELUMAB [Suspect]
     Active Substance: AVELUMAB
     Indication: ADENOCARCINOMA GASTRIC
     Dosage: 960 MG, CYCLIC (ONCE EVERY TWO WEEKS)
     Route: 042
     Dates: start: 20170824
  16. OXALIPLATIN. [Suspect]
     Active Substance: OXALIPLATIN
     Dosage: 165 MG, UNK
     Route: 042
  17. FLUOROURACIL. [Suspect]
     Active Substance: FLUOROURACIL
     Dosage: 5100 MG, UNK
     Route: 042
     Dates: end: 20170804

REACTIONS (1)
  - General physical health deterioration [Recovered/Resolved]

NARRATIVE: CASE EVENT DATE: 20181227
